FAERS Safety Report 10207865 (Version 1)
Quarter: 2014Q2

REPORT INFORMATION
  Report Type: Report from Study
  Country: RU (occurrence: RU)
  Receive Date: 20140530
  Receipt Date: 20140530
  Transmission Date: 20141212
  Serious: Yes (Other)
  Sender: FDA-Public Use
  Company Number: RU-BAXTER-2014BAX028024

PATIENT
  Sex: 0

DRUGS (1)
  1. ENDOKSAN POROSHOK DLJA PRIGOTOVLENIJA RASTVORA DLJA VNUTRIVENNOGO VVED [Suspect]
     Indication: IMMUNOSUPPRESSANT DRUG THERAPY
     Route: 065

REACTIONS (1)
  - Acute graft versus host disease [Unknown]
